FAERS Safety Report 8044340-6 (Version None)
Quarter: 2012Q1

REPORT INFORMATION
  Report Type: 
  Country: None (occurrence: None)
  Receive Date: 20120113
  Receipt Date: 20120105
  Transmission Date: 20120608
  Serious: Yes (Hospitalization)
  Sender: FDA-Public Use
  Company Number: US-US-EMD SERONO, INC.-7087864

PATIENT
  Sex: Female

DRUGS (2)
  1. REBIF [Suspect]
     Indication: PRODUCT USED FOR UNKNOWN INDICATION
     Route: 058
     Dates: start: 20100701
  2. AMPYRA [Concomitant]

REACTIONS (5)
  - ROAD TRAFFIC ACCIDENT [None]
  - COLITIS [None]
  - STAPHYLOCOCCAL INFECTION [None]
  - CYSTITIS [None]
  - CHEST INJURY [None]
